FAERS Safety Report 7939499-2 (Version None)
Quarter: 2011Q4

REPORT INFORMATION
  Report Type: 
  Country: None (occurrence: None)
  Receive Date: 20111125
  Receipt Date: 20111124
  Transmission Date: 20120403
  Serious: Yes (Hospitalization)
  Sender: FDA-Public Use
  Company Number: CH-BAYER-2011-113144

PATIENT
  Age: 62 Year
  Sex: Male

DRUGS (5)
  1. LEVEMIR [Concomitant]
  2. ASPIRIN [Suspect]
     Dosage: 100 MG, QD
     Route: 048
     Dates: end: 20110530
  3. ATENOLOL [Concomitant]
     Dosage: 100 MG, QID
  4. METFORMIN HCL [Concomitant]
  5. NOVORAPID [Concomitant]

REACTIONS (3)
  - DUODENAL ULCER [None]
  - ANAEMIA [None]
  - SHOCK HAEMORRHAGIC [None]
